FAERS Safety Report 20946557 (Version 1)
Quarter: 2022Q2

REPORT INFORMATION
  Report Type: Report from Study
  Country: CN (occurrence: CN)
  Receive Date: 20220610
  Receipt Date: 20220610
  Transmission Date: 20220721
  Serious: Yes (Death, Life-Threatening)
  Sender: FDA-Public Use
  Company Number: CN-TAKEDA-2021TUS005522

PATIENT
  Age: 54 Year
  Sex: Female

DRUGS (24)
  1. IMATINIB [Suspect]
     Active Substance: IMATINIB
     Indication: Acute lymphocytic leukaemia
     Dosage: 600 MILLIGRAM, QD
     Route: 048
     Dates: start: 20210119
  2. CYTARABINE [Suspect]
     Active Substance: CYTARABINE
     Indication: Acute lymphocytic leukaemia
     Dosage: 40 MILLIGRAM, Q2WEEKS
     Route: 037
     Dates: start: 20210119
  3. DEXAMETHASONE [Suspect]
     Active Substance: DEXAMETHASONE
     Indication: Acute lymphocytic leukaemia
     Dosage: 5 MILLIGRAM, Q2WEEKS
     Route: 037
     Dates: start: 20210119
  4. METHOTREXATE [Suspect]
     Active Substance: METHOTREXATE
     Indication: Acute lymphocytic leukaemia
     Dosage: 15 MILLIGRAM, Q2WEEKS
     Route: 037
     Dates: start: 20210119
  5. VINCRISTINE [Suspect]
     Active Substance: VINCRISTINE
     Indication: Acute lymphocytic leukaemia
     Dosage: 1.4 MILLIGRAM/SQ. METER
     Route: 042
     Dates: start: 20210119
  6. VINCRISTINE [Suspect]
     Active Substance: VINCRISTINE
     Dosage: 2 MILLIGRAM
     Route: 042
     Dates: start: 20210119
  7. DEXAMETHASONE [Suspect]
     Active Substance: DEXAMETHASONE
     Indication: Acute lymphocytic leukaemia
     Dosage: 40 MILLIGRAM
     Route: 048
     Dates: start: 20210119
  8. BENZBROMARONE [Concomitant]
     Active Substance: BENZBROMARONE
     Indication: Hyperuricaemia
     Dosage: 50 MILLIGRAM, QD
     Route: 048
     Dates: start: 20210105
  9. FUROSEMIDE [Concomitant]
     Active Substance: FUROSEMIDE
     Indication: Polyuria
     Dosage: 20 MILLIGRAM, QD
     Route: 042
     Dates: start: 20210105, end: 20210118
  10. FUROSEMIDE [Concomitant]
     Active Substance: FUROSEMIDE
     Dosage: 10 MILLIGRAM, QD
     Route: 042
     Dates: start: 20210119, end: 20210120
  11. CEFTIZOXIME [Concomitant]
     Active Substance: CEFTIZOXIME
     Indication: Infection
     Dosage: 2 GRAM, Q8HR
     Route: 041
     Dates: start: 20210105, end: 20210120
  12. HYDROXYMETHYLNICOTINAMIDE [Concomitant]
     Indication: White blood cell count decreased
     Dosage: 0.5 GRAM, TID
     Route: 048
     Dates: start: 20210105, end: 20210109
  13. VORICONAZOLE [Concomitant]
     Active Substance: VORICONAZOLE
     Indication: Infection
     Dosage: 0.4 GRAM, BID
     Route: 048
     Dates: start: 20210106, end: 20210106
  14. VORICONAZOLE [Concomitant]
     Active Substance: VORICONAZOLE
     Dosage: 0.2 GRAM, BID
     Route: 048
     Dates: start: 20210107, end: 20210113
  15. VORICONAZOLE [Concomitant]
     Active Substance: VORICONAZOLE
     Dosage: 0.2 GRAM, QD
     Route: 048
     Dates: start: 20210120, end: 20210126
  16. BICYCLOL [Concomitant]
     Active Substance: BICYCLOL
     Indication: Hepatic function abnormal
     Dosage: 50 MILLIGRAM, TID
     Route: 048
     Dates: start: 20210106, end: 20210120
  17. BICYCLOL [Concomitant]
     Active Substance: BICYCLOL
     Dosage: 50 MILLIGRAM, QD
     Route: 048
     Dates: start: 20210121, end: 20210126
  18. OMEPRAZOLE [Concomitant]
     Active Substance: OMEPRAZOLE
     Indication: Prophylaxis
     Dosage: 20 MILLIGRAM, QD
     Route: 048
     Dates: start: 20210107, end: 20210126
  19. MAGNESIUM ISOGLYCYRRHIZINATE [Concomitant]
     Active Substance: MAGNESIUM ISOGLYCYRRHIZINATE
     Indication: Hepatic function abnormal
     Dosage: 200 MILLIGRAM, QD
     Route: 041
     Dates: start: 20210112, end: 20210120
  20. ADEMETIONINE BUTANEDISULFONATE [Concomitant]
     Active Substance: ADEMETIONINE BUTANEDISULFONATE
     Indication: Hepatic function abnormal
     Dosage: 2 GRAM, QD
     Route: 041
     Dates: start: 20210112, end: 20210120
  21. GRANULOCYTE COLONY-STIMULATING FACTOR NOS [Concomitant]
     Active Substance: GRANULOCYTE COLONY-STIMULATING FACTOR NOS
     Indication: Granulocyte count increased
     Dosage: 150 MICROGRAM, QD
     Route: 058
     Dates: start: 20210112, end: 20210113
  22. GRANULOCYTE COLONY-STIMULATING FACTOR NOS [Concomitant]
     Active Substance: GRANULOCYTE COLONY-STIMULATING FACTOR NOS
     Dosage: 200 MICROGRAM, QD
     Route: 058
     Dates: start: 20210118, end: 20210120
  23. POSACONAZOLE [Concomitant]
     Active Substance: POSACONAZOLE
     Indication: Prophylaxis
     Dosage: 5 MILLILITER, QD
     Route: 048
     Dates: start: 20210113, end: 20210120
  24. CALCIUM CARBONATE\CHOLECALCIFEROL [Concomitant]
     Active Substance: CALCIUM CARBONATE\CHOLECALCIFEROL
     Indication: Prophylaxis
     Dosage: 600 MILLIGRAM, QD
     Route: 048
     Dates: start: 20210120, end: 20210126

REACTIONS (1)
  - Depressed level of consciousness [Fatal]

NARRATIVE: CASE EVENT DATE: 20210126
